FAERS Safety Report 23776822 (Version 3)
Quarter: 2025Q1

REPORT INFORMATION
  Report Type: Spontaneous
  Country: US (occurrence: US)
  Receive Date: 20240424
  Receipt Date: 20250328
  Transmission Date: 20250408
  Serious: No
  Sender: GLAXOSMITHKLINE
  Company Number: US-GSKCCFUS-Case-01989194_AE-110426

PATIENT

DRUGS (1)
  1. BENLYSTA [Suspect]
     Active Substance: BELIMUMAB
     Indication: Systemic lupus erythematosus
     Dates: start: 20240201

REACTIONS (6)
  - Dental operation [Unknown]
  - Tooth infection [Unknown]
  - Product dose omission issue [Unknown]
  - Underdose [Unknown]
  - Product prescribing error [Unknown]
  - Product storage error [Unknown]

NARRATIVE: CASE EVENT DATE: 20240408
